FAERS Safety Report 7085250-0 (Version None)
Quarter: 2010Q4

REPORT INFORMATION
  Report Type: 
  Country: None (occurrence: None)
  Receive Date: 20101105
  Receipt Date: 20101026
  Transmission Date: 20110411
  Serious: Yes (Hospitalization)
  Sender: FDA-Public Use
  Company Number: CA-JNJFOC-20100500881

PATIENT
  Sex: Female
  Weight: 54 kg

DRUGS (5)
  1. REMICADE [Suspect]
     Indication: CROHN'S DISEASE
     Dosage: DURATION ^TO PRESENT^
     Route: 042
  2. CELEBREX [Concomitant]
  3. IMURAN [Concomitant]
  4. VITAMIN B-12 [Concomitant]
     Route: 050
  5. CALCIUM [Concomitant]

REACTIONS (4)
  - BACK PAIN [None]
  - CHEST PAIN [None]
  - DYSPNOEA [None]
  - LUPUS-LIKE SYNDROME [None]
